FAERS Safety Report 16266207 (Version 1)
Quarter: 2019Q2

REPORT INFORMATION
  Report Type: Spontaneous
  Country: GB (occurrence: GB)
  Receive Date: 20190502
  Receipt Date: 20190502
  Transmission Date: 20190711
  Serious: Yes (Other)
  Sender: FDA-Public Use
  Company Number: GB-TEVA-2019-GB-1044276

PATIENT
  Age: 61 Year
  Sex: Male
  Weight: 103 kg

DRUGS (15)
  1. DULAGLUTIDE. [Concomitant]
     Active Substance: DULAGLUTIDE
     Dates: start: 20190211
  2. SILDENAFIL. [Concomitant]
     Active Substance: SILDENAFIL
     Dosage: USE AS DIRECTED
     Dates: start: 20181119, end: 20190211
  3. TACROLIMUS. [Concomitant]
     Active Substance: TACROLIMUS
     Dates: start: 20181119
  4. SIMVASTATIN. [Concomitant]
     Active Substance: SIMVASTATIN
     Dosage: 1 DOSAGE FORMS DAILY; ONE IN THE EVENING . AVOID GRAPEFRUIT
     Dates: start: 20181119
  5. DERMOL SHAMPOO [Concomitant]
     Dosage: USE ONCE OR TWICE WEEKLY
     Dates: start: 20181119
  6. FULTIUM-D3 [Concomitant]
     Active Substance: CHOLECALCIFEROL
     Dates: start: 20181119
  7. RAMIPRIL. [Concomitant]
     Active Substance: RAMIPRIL
     Dates: start: 20181119
  8. CALCITRIOL. [Concomitant]
     Active Substance: CALCITRIOL
     Dates: start: 20181119
  9. GLUCOPHAGE [Concomitant]
     Active Substance: METFORMIN HYDROCHLORIDE
     Dates: start: 20181119
  10. ATENOLOL. [Concomitant]
     Active Substance: ATENOLOL
     Dosage: 1 DF
     Dates: start: 20181119
  11. FELODIPINE. [Concomitant]
     Active Substance: FELODIPINE
     Dates: start: 20181119
  12. VICTOZA [Concomitant]
     Active Substance: LIRAGLUTIDE
     Dates: start: 20181119, end: 20190211
  13. CITALOPRAM [Concomitant]
     Active Substance: CITALOPRAM HYDROBROMIDE
     Dates: start: 20181119
  14. CALCIPOTRIOL [Concomitant]
     Active Substance: CALCIPOTRIENE
     Dosage: 2 DF
     Dates: start: 20181119
  15. OXYBUTYNIN. [Suspect]
     Active Substance: OXYBUTYNIN CHLORIDE
     Dates: start: 20190211

REACTIONS (1)
  - Chest discomfort [Recovered/Resolved]

NARRATIVE: CASE EVENT DATE: 20190211
